FAERS Safety Report 4305931-9 (Version None)
Quarter: 2004Q1

REPORT INFORMATION
  Report Type: 
  Country: None (occurrence: None)
  Receive Date: 20040225
  Receipt Date: 20040212
  Transmission Date: 20041129
  Serious: Yes (Death)
  Sender: FDA-Public Use
  Company Number: 8005457

PATIENT
  Age: 50 Year
  Sex: Female

DRUGS (1)
  1. KEPPRA [Suspect]

REACTIONS (2)
  - EPILEPSY [None]
  - SUDDEN DEATH [None]
